FAERS Safety Report 6702151-5 (Version None)
Quarter: 2010Q2

REPORT INFORMATION
  Report Type: 
  Country: None (occurrence: None)
  Receive Date: 20100429
  Receipt Date: 20100420
  Transmission Date: 20101027
  Serious: Yes (Other)
  Sender: FDA-Public Use
  Company Number: B0650179A

PATIENT
  Age: 63 Year
  Sex: Female

DRUGS (1)
  1. ALLI [Suspect]
     Dosage: 2CAP PER DAY
     Route: 048
     Dates: start: 20100401, end: 20100401

REACTIONS (3)
  - ANAL HAEMORRHAGE [None]
  - HAEMATOCHEZIA [None]
  - RECTAL HAEMORRHAGE [None]
